FAERS Safety Report 5851720-3 (Version None)
Quarter: 2008Q3

REPORT INFORMATION
  Report Type: 
  Country: None (occurrence: None)
  Receive Date: 20080820
  Receipt Date: 20080809
  Transmission Date: 20090109
  Serious: Yes (Death, Hospitalization, Other)
  Sender: FDA-Public Use
  Company Number: IN-BAXTER-2008BH007961

PATIENT
  Age: 26 Year
  Sex: Male
  Weight: 51 kg

DRUGS (3)
  1. DIANEAL [Suspect]
     Indication: RENAL FAILURE CHRONIC
     Route: 033
     Dates: start: 20080701, end: 20080727
  2. DIANEAL [Suspect]
     Route: 033
     Dates: start: 20080701, end: 20080727
  3. DIANEAL [Suspect]
     Dosage: DOSE UNIT:UNKNOWN
     Route: 033
     Dates: start: 20080601, end: 20080701

REACTIONS (3)
  - HYPOTENSION [None]
  - PERITONITIS [None]
  - SEPSIS [None]
